FAERS Safety Report 23050187 (Version 1)
Quarter: 2023Q4

REPORT INFORMATION
  Report Type: Spontaneous
  Country: US (occurrence: US)
  Receive Date: 20231010
  Receipt Date: 20231010
  Transmission Date: 20240110
  Serious: Yes (Other)
  Sender: FDA-Public Use
  Company Number: US-SA-2023SA304298

PATIENT
  Age: 50 Year
  Sex: Female

DRUGS (1)
  1. DUPILUMAB [Suspect]
     Active Substance: DUPILUMAB
     Indication: NSAID exacerbated respiratory disease
     Dosage: UNK

REACTIONS (8)
  - Sarcoidosis [Recovered/Resolved]
  - Off label use [Recovered/Resolved]
  - Erythema nodosum [Recovered/Resolved]
  - Skin mass [Recovered/Resolved]
  - Skin plaque [Recovered/Resolved]
  - Vision blurred [Recovered/Resolved]
  - Lymphadenopathy mediastinal [Recovered/Resolved]
  - Hilar lymphadenopathy [Recovered/Resolved]
